FAERS Safety Report 6759544-X (Version None)
Quarter: 2010Q2

REPORT INFORMATION
  Report Type: 
  Country: None (occurrence: None)
  Receive Date: 20100607
  Receipt Date: 20100531
  Transmission Date: 20101027
  Serious: Yes (Other)
  Sender: FDA-Public Use
  Company Number: JP-BRISTOL-MYERS SQUIBB COMPANY-15118102

PATIENT
  Age: 62 Year
  Sex: Female

DRUGS (2)
  1. TAXOL [Suspect]
     Indication: METASTASES TO LIVER
     Dosage: 1 DF =90-125MG
     Route: 042
     Dates: start: 20070801
  2. BEVACIZUMAB [Suspect]

REACTIONS (1)
  - MACULOPATHY [None]
